FAERS Safety Report 12198479 (Version 4)
Quarter: 2017Q1

REPORT INFORMATION
  Report Type: Spontaneous
  Country: US (occurrence: US)
  Receive Date: 20160322
  Receipt Date: 20170202
  Transmission Date: 20170428
  Serious: Yes (Other)
  Sender: FDA-Public Use
  Company Number: US-JNJFOC-20160311957

PATIENT
  Age: 50 Year
  Sex: Male

DRUGS (2)
  1. RISPERIDONE. [Suspect]
     Active Substance: RISPERIDONE
     Indication: PRODUCT USED FOR UNKNOWN INDICATION
     Dosage: ON 11-NOV-2014, THE PATIENT WAS ON RISPERIDONE 0.5 MG TABLET 1 TABLET ONCE A DAY.
     Route: 048
     Dates: end: 20160202
  2. RISPERDAL [Suspect]
     Active Substance: RISPERIDONE
     Indication: DEPRESSION
     Dosage: 0.5 MG RISPERIDONE 1 TABLET ONCE A DAY ON 18-11-2013, 18-03-2014, 09-09-2014, 11-11-2014.
     Route: 048
     Dates: start: 201306, end: 201602

REACTIONS (5)
  - Obesity [Unknown]
  - Gynaecomastia [Unknown]
  - Product use issue [Unknown]
  - Hyperprolactinaemia [Unknown]
  - Off label use [Unknown]

NARRATIVE: CASE EVENT DATE: 201306
